FAERS Safety Report 25923803 (Version 3)
Quarter: 2025Q4

REPORT INFORMATION
  Report Type: Report from Study
  Country: EU (occurrence: EU)
  Receive Date: 20251015
  Receipt Date: 20251119
  Transmission Date: 20260118
  Serious: Yes (Death, Other)
  Sender: AUROBINDO
  Company Number: EU-CELLTRION INC.-2025IT034948

PATIENT

DRUGS (5)
  1. BENDAMUSTINE [Suspect]
     Active Substance: BENDAMUSTINE
     Indication: Mantle cell lymphoma
     Dosage: 70 MG/M2 ON DAYS 1 AND 2
  2. RITUXIMAB [Suspect]
     Active Substance: RITUXIMAB
     Indication: Mantle cell lymphoma
     Dosage: 375 MG/M2 AND DAY 1
  3. CYTARABINE [Suspect]
     Active Substance: CYTARABINE
     Indication: Mantle cell lymphoma
     Dosage: 500 MG/M2 ON DAYS 1, 2 AND 3 EVERY 4 WEEKS FOR 6 CYCLES
  4. VENETOCLAX [Suspect]
     Active Substance: VENETOCLAX
     Indication: Mantle cell lymphoma
     Dosage: 800 MILLIGRAM, ONCE A DAY
  5. VENETOCLAX [Suspect]
     Active Substance: VENETOCLAX
     Dosage: 400 MILLIGRAM, ONCE A DAY

REACTIONS (2)
  - Tumour lysis syndrome [Fatal]
  - Intentional product use issue [Unknown]
